FAERS Safety Report 14504740 (Version 1)
Quarter: 2018Q1

REPORT INFORMATION
  Report Type: Spontaneous
  Country: US (occurrence: US)
  Receive Date: 20180208
  Receipt Date: 20180208
  Transmission Date: 20180509
  Serious: No
  Sender: FDA-Public Use
  Company Number: US-JNJFOC-20180116202

PATIENT
  Age: 44 Year
  Sex: Female
  Weight: 74.84 kg

DRUGS (1)
  1. TYLENOL CHILD SUSP LIQ STRAWBERRY [Suspect]
     Active Substance: ACETAMINOPHEN
     Indication: PRODUCT USED FOR UNKNOWN INDICATION
     Route: 065
     Dates: start: 20180111

REACTIONS (2)
  - Laceration [Recovering/Resolving]
  - Product container issue [Unknown]

NARRATIVE: CASE EVENT DATE: 20180111
